FAERS Safety Report 16222505 (Version 1)
Quarter: 2019Q2

REPORT INFORMATION
  Report Type: Spontaneous
  Country: US (occurrence: US)
  Receive Date: 20190419
  Receipt Date: 20190419
  Transmission Date: 20190711
  Serious: Yes (Life-Threatening, Hospitalization)
  Sender: FDA-Public Use
  Company Number: None

PATIENT
  Age: 72 Year
  Sex: Male
  Weight: 74.25 kg

DRUGS (14)
  1. BRILINTA [Suspect]
     Active Substance: TICAGRELOR
     Indication: COAGULOPATHY
     Dates: start: 20180801, end: 20180826
  2. WARFARIN [Concomitant]
     Active Substance: WARFARIN
  3. COQ10 [Concomitant]
     Active Substance: UBIDECARENONE
  4. AMIADARONE [Concomitant]
  5. ATORVASTATIN [Concomitant]
     Active Substance: ATORVASTATIN
  6. PLAVIX [Concomitant]
     Active Substance: CLOPIDOGREL BISULFATE
  7. RAMAPRIL [Concomitant]
  8. FUROSEMIDE. [Concomitant]
     Active Substance: FUROSEMIDE
  9. FOLIC ACID. [Concomitant]
     Active Substance: FOLIC ACID
  10. METROPOLOL [Concomitant]
     Active Substance: METOPROLOL
  11. POTASSIUM CHLORIDE. [Concomitant]
     Active Substance: POTASSIUM CHLORIDE
  12. ASPIRIN. [Concomitant]
     Active Substance: ASPIRIN
  13. B6 [Concomitant]
     Active Substance: PYRIDOXINE HYDROCHLORIDE
  14. VITAMIN B12 [Concomitant]
     Active Substance: CYANOCOBALAMIN

REACTIONS (4)
  - Coronary artery occlusion [None]
  - Platelet count increased [None]
  - Myocardial infarction [None]
  - Drug ineffective [None]

NARRATIVE: CASE EVENT DATE: 20180816
